FAERS Safety Report 8196285-9 (Version None)
Quarter: 2012Q1

REPORT INFORMATION
  Report Type: 
  Country: None (occurrence: None)
  Receive Date: 20120229
  Receipt Date: 20100819
  Transmission Date: 20120608
  Serious: No
  Sender: FDA-Public Use
  Company Number: 010794

PATIENT

DRUGS (1)
  1. SAMSCA [Suspect]

REACTIONS (3)
  - TACHYCARDIA [None]
  - PYREXIA [None]
  - LETHARGY [None]
